FAERS Safety Report 15029015 (Version 1)
Quarter: 2018Q2

REPORT INFORMATION
  Report Type: Spontaneous
  Country: IT (occurrence: IT)
  Receive Date: 20180619
  Receipt Date: 20180619
  Transmission Date: 20180711
  Serious: Yes (Hospitalization)
  Sender: FDA-Public Use
  Company Number: IT-VERTEX PHARMACEUTICALS-2018-004032

PATIENT
  Age: 17 Year

DRUGS (1)
  1. ORKAMBI [Suspect]
     Active Substance: IVACAFTOR\LUMACAFTOR
     Indication: CYSTIC FIBROSIS
     Dosage: 2 DOSAGE FORM, QD
     Route: 048
     Dates: start: 20180219, end: 20180515

REACTIONS (1)
  - Blood creatine phosphokinase BB increased [Recovered/Resolved]

NARRATIVE: CASE EVENT DATE: 20180515
